FAERS Safety Report 8947950 (Version 1)
Quarter: 2012Q4

REPORT INFORMATION
  Report Type: Spontaneous
  Country: US (occurrence: None)
  Receive Date: 20121203
  Receipt Date: 20121203
  Transmission Date: 20130627
  Serious: No
  Sender: FDA-Public Use
  Company Number: None

PATIENT
  Sex: Female

DRUGS (1)
  1. TRAZODONE [Suspect]

REACTIONS (4)
  - Initial insomnia [None]
  - Palpitations [None]
  - Palpitations [None]
  - Chest pain [None]
